FAERS Safety Report 5258740-0 (Version None)
Quarter: 2007Q1

REPORT INFORMATION
  Report Type: 
  Country: None (occurrence: None)
  Receive Date: 20070306
  Receipt Date: 20070306
  Transmission Date: 20070707
  Serious: Yes (Hospitalization)
  Sender: FDA-Public Use
  Company Number: None

PATIENT
  Age: 83 Year
  Sex: Male
  Weight: 74 kg

DRUGS (1)
  1. ACETAMINOPHEN AND HYDROCODONE BITARTRATE [Suspect]
     Indication: PAIN
     Dosage: 5/500MG Q4-6H PRN PO
     Route: 048
     Dates: start: 20061022, end: 20061024

REACTIONS (4)
  - BACK PAIN [None]
  - HALLUCINATION, VISUAL [None]
  - INADEQUATE ANALGESIA [None]
  - PAIN IN EXTREMITY [None]
